FAERS Safety Report 6028070-8 (Version None)
Quarter: 2009Q1

REPORT INFORMATION
  Report Type: 
  Country: None (occurrence: None)
  Receive Date: 20090102
  Receipt Date: 20081217
  Transmission Date: 20090719
  Serious: Yes (Other)
  Sender: FDA-Public Use
  Company Number: 2008AP003211

PATIENT
  Age: 56 Year
  Sex: Female

DRUGS (6)
  1. ZONISAMIDE [Suspect]
     Indication: CONVULSION
     Dosage: 400 MG; QD; PO, 200 MG; QD; PO, 100 MG; QD; PO
     Route: 048
     Dates: start: 20070101
  2. ZONISAMIDE [Suspect]
     Indication: CONVULSION
     Dosage: 400 MG; QD; PO, 200 MG; QD; PO, 100 MG; QD; PO
     Route: 048
     Dates: start: 20080301
  3. ALENDRONATE SODIUM [Concomitant]
  4. ATORVASTATIN CALCIUM [Concomitant]
  5. LEVETIRACETAM [Concomitant]
  6. VALPROATE SODIUM [Concomitant]

REACTIONS (7)
  - ALOPECIA [None]
  - DEPRESSION [None]
  - DRY SKIN [None]
  - HAEMOGLOBIN DECREASED [None]
  - HAIR TEXTURE ABNORMAL [None]
  - IRON METABOLISM DISORDER [None]
  - ONYCHOLYSIS [None]
